FAERS Safety Report 8507697-5 (Version None)
Quarter: 2012Q3

REPORT INFORMATION
  Report Type: 
  Country: None (occurrence: None)
  Receive Date: 20120713
  Receipt Date: 20120703
  Transmission Date: 20120928
  Serious: Yes (Other)
  Sender: FDA-Public Use
  Company Number: US-ELI_LILLY_AND_COMPANY-US201207001409

PATIENT
  Sex: Female

DRUGS (4)
  1. HUMALOG [Suspect]
     Indication: DIABETES MELLITUS
     Dosage: 5 U, EACH EVENING
     Dates: start: 20120401
  2. ASPIRIN [Concomitant]
  3. LEVEMIR [Concomitant]
     Dosage: UNK, BID
  4. FISH OIL [Concomitant]

REACTIONS (5)
  - VISUAL IMPAIRMENT [None]
  - MEDICATION ERROR [None]
  - CARDIAC FAILURE CONGESTIVE [None]
  - RENAL FAILURE [None]
  - INJECTION SITE HAEMATOMA [None]
